FAERS Safety Report 24222385 (Version 2)
Quarter: 2024Q3

REPORT INFORMATION
  Report Type: Spontaneous
  Country: US (occurrence: US)
  Receive Date: 20240819
  Receipt Date: 20240909
  Transmission Date: 20241017
  Serious: No
  Sender: GLAXOSMITHKLINE
  Company Number: US-GSK-US2024029123

PATIENT
  Sex: Male

DRUGS (1)
  1. NUCALA [Suspect]
     Active Substance: MEPOLIZUMAB
     Indication: Asthma
     Dosage: 100 MG/ML
     Route: 058
     Dates: start: 20240220

REACTIONS (6)
  - Fatigue [Unknown]
  - Inflammation [Unknown]
  - Eczema [Unknown]
  - Rash [Unknown]
  - Petechiae [Unknown]
  - Wrong technique in device usage process [Unknown]
